FAERS Safety Report 20886420 (Version 3)
Quarter: 2022Q3

REPORT INFORMATION
  Report Type: Report from Study
  Country: CO (occurrence: CO)
  Receive Date: 20220527
  Receipt Date: 20220727
  Transmission Date: 20221027
  Serious: Yes (Hospitalization)
  Sender: FDA-Public Use
  Company Number: CO-NOVARTISPH-NVSC2022CO120098

PATIENT
  Age: 53 Year
  Sex: Female
  Weight: 52 kg

DRUGS (12)
  1. KISQALI [Suspect]
     Active Substance: RIBOCICLIB
     Indication: Breast cancer metastatic
     Dosage: UNK, QD
     Route: 048
  2. KISQALI [Suspect]
     Active Substance: RIBOCICLIB
     Dosage: 600 MG, QD
     Route: 048
     Dates: start: 202203, end: 202204
  3. KISQALI [Suspect]
     Active Substance: RIBOCICLIB
     Dosage: 600 MG, QD
     Route: 048
     Dates: start: 20220620
  4. KISQALI [Suspect]
     Active Substance: RIBOCICLIB
     Dosage: 600 MG, QD
     Route: 048
     Dates: start: 20220625, end: 20220713
  5. ZOLEDRONIC ACID [Suspect]
     Active Substance: ZOLEDRONIC ACID
     Indication: Fracture
     Dosage: 4 MG
     Route: 065
  6. ZOLEDRONIC ACID [Suspect]
     Active Substance: ZOLEDRONIC ACID
     Dosage: UNK SHE DOES NOT RECALL  (EVERY THREE MONTHS)
     Route: 042
     Dates: start: 20220406
  7. ANASTROZOLE [Suspect]
     Active Substance: ANASTROZOLE
     Indication: Breast cancer
     Dosage: UNK
     Route: 065
     Dates: end: 202204
  8. FULVESTRANT [Suspect]
     Active Substance: FULVESTRANT
     Indication: Breast cancer metastatic
     Dosage: 500 MG (EVERY 14 DAYS)
     Route: 065
  9. FULVESTRANT [Suspect]
     Active Substance: FULVESTRANT
     Indication: Metastases to spine
     Dosage: 500 MG, QMO
     Route: 030
     Dates: start: 20220406
  10. CALCIUM\VITAMIN D [Concomitant]
     Active Substance: CALCIUM\VITAMIN D
     Indication: Blood calcium decreased
     Dosage: 200 MG, QD
     Route: 048
     Dates: start: 2020
  11. CALCIUM\VITAMIN D [Concomitant]
     Active Substance: CALCIUM\VITAMIN D
     Indication: Vitamin D decreased
  12. LEVOTHYROXINE [Concomitant]
     Active Substance: LEVOTHYROXINE
     Indication: Hypothyroidism
     Dosage: 100 MG, QD
     Route: 048
     Dates: start: 2021

REACTIONS (11)
  - Memory impairment [Unknown]
  - Mood swings [Unknown]
  - Metastases to lung [Unknown]
  - Metastases to spine [Unknown]
  - Fatigue [Unknown]
  - Off label use [Unknown]
  - Flank pain [Unknown]
  - Spinal pain [Unknown]
  - Hypoaesthesia [Unknown]
  - Dizziness [Unknown]
  - Drug ineffective [Unknown]

NARRATIVE: CASE EVENT DATE: 20220401
